FAERS Safety Report 7014258-6 (Version None)
Quarter: 2010Q3

REPORT INFORMATION
  Report Type: 
  Country: None (occurrence: None)
  Receive Date: 20100924
  Receipt Date: 20100924
  Transmission Date: 20110219
  Serious: Yes (Disabling)
  Sender: FDA-Public Use
  Company Number: None

PATIENT
  Age: 59 Year
  Sex: Female
  Weight: 59.1 kg

DRUGS (2)
  1. ACTONEL [Suspect]
     Dosage: 150 MG. ONCE @ MONTH ORAL 047
     Route: 048
     Dates: start: 20100601
  2. ACTONEL [Suspect]
     Dosage: 150 MG. ONCE @ MONTH ORAL 047
     Route: 048
     Dates: start: 20100801

REACTIONS (6)
  - ACTIVITIES OF DAILY LIVING IMPAIRED [None]
  - ARTHRALGIA [None]
  - BACK PAIN [None]
  - DYSPHAGIA [None]
  - INFLUENZA [None]
  - NECK PAIN [None]
